FAERS Safety Report 5393076-9 (Version None)
Quarter: 2007Q3

REPORT INFORMATION
  Report Type: 
  Country: None (occurrence: None)
  Receive Date: 20070719
  Receipt Date: 20070717
  Transmission Date: 20080115
  Serious: Yes (Other)
  Sender: FDA-Public Use
  Company Number: E2090-00271-SPO-DE

PATIENT
  Age: 33 Year
  Sex: Female
  Weight: 100 kg

DRUGS (1)
  1. ZONEGRAN [Suspect]
     Indication: EPILEPSY
     Dosage: 400 MG, 1 IN 1 D, ORAL
     Route: 048
     Dates: start: 20070418, end: 20070703

REACTIONS (1)
  - ALOPECIA [None]
